FAERS Safety Report 5338461-6 (Version None)
Quarter: 2007Q2

REPORT INFORMATION
  Report Type: 
  Country: None (occurrence: None)
  Receive Date: 20070322
  Receipt Date: 20060705
  Transmission Date: 20071010
  Serious: Yes (Other)
  Sender: FDA-Public Use
  Company Number: 200612146BCC

PATIENT
  Age: 73 Year
  Sex: Male
  Weight: 104.3273 kg

DRUGS (11)
  1. ALEVE [Suspect]
     Indication: TENDON RUPTURE
     Dosage: 220 MG, BID, ORAL
     Route: 048
     Dates: start: 20060517
  2. HYDROCHLOROTHIAZIDE [Concomitant]
  3. POTASSIUM CHLORIDE [Concomitant]
  4. ADVAIR DISKUS 100/50 [Concomitant]
  5. ALLEGRA [Concomitant]
  6. FOSAMAX [Concomitant]
  7. CARDIZEM [Concomitant]
  8. MICARDIS HCT [Concomitant]
  9. ALLOPURINOL [Concomitant]
  10. DOCUSATE SODIUM [Concomitant]
  11. CITRACAL [Concomitant]

REACTIONS (1)
  - HYPERTENSION [None]
